FAERS Safety Report 12053027 (Version 1)
Quarter: 2016Q1

REPORT INFORMATION
  Report Type: Spontaneous
  Country: FR (occurrence: FR)
  Receive Date: 20160209
  Receipt Date: 20160209
  Transmission Date: 20160526
  Serious: Yes (Other)
  Sender: FDA-Public Use
  Company Number: FR-ASTRAZENECA-2015SE47168

PATIENT
  Age: 923 Month
  Sex: Female

DRUGS (7)
  1. INNOHEP [Concomitant]
     Active Substance: TINZAPARIN SODIUM
  2. DIGOXINE [Concomitant]
     Active Substance: DIGOXIN
  3. MONOCRIXO [Concomitant]
     Active Substance: TRAMADOL HYDROCHLORIDE
  4. ESIDREX [Concomitant]
     Active Substance: HYDROCHLOROTHIAZIDE
  5. BISOPROLOL [Concomitant]
     Active Substance: BISOPROLOL
  6. IRESSA [Suspect]
     Active Substance: GEFITINIB
     Route: 048
     Dates: start: 20141001, end: 20150402
  7. IRESSA [Suspect]
     Active Substance: GEFITINIB
     Route: 048
     Dates: start: 2015

REACTIONS (3)
  - Weight decreased [Unknown]
  - Transaminases increased [Unknown]
  - Asthenia [Unknown]

NARRATIVE: CASE EVENT DATE: 201501
